FAERS Safety Report 12804873 (Version 1)
Quarter: 2016Q4

REPORT INFORMATION
  Report Type: Spontaneous
  Country: US (occurrence: US)
  Receive Date: 20161003
  Receipt Date: 20161003
  Transmission Date: 20170207
  Serious: No
  Sender: FDA-Public Use
  Company Number: US-ASTRAZENECA-2016SF01660

PATIENT
  Age: 55 Year
  Sex: Female

DRUGS (15)
  1. DILAUDID [Concomitant]
     Active Substance: HYDROMORPHONE HYDROCHLORIDE
  2. LUNESTA [Concomitant]
     Active Substance: ESZOPICLONE
  3. MIRALAX [Concomitant]
     Active Substance: POLYETHYLENE GLYCOL 3350
  4. SYNTHROID [Concomitant]
     Active Substance: LEVOTHYROXINE SODIUM
  5. PROBIOITCS [Concomitant]
  6. PAIN PILLS [Concomitant]
     Active Substance: UNSPECIFIED INGREDIENT
  7. FLEXERIL [Concomitant]
     Active Substance: CYCLOBENZAPRINE HYDROCHLORIDE
  8. NEW MEDICATIONS [Concomitant]
     Active Substance: UNSPECIFIED INGREDIENT
     Dosage: AT NIGHT
  9. MOVANTIK [Suspect]
     Active Substance: NALOXEGOL OXALATE
     Indication: CONSTIPATION
     Route: 048
  10. ASPIRIN. [Concomitant]
     Active Substance: ASPIRIN
  11. LINZESS [Concomitant]
     Active Substance: LINACLOTIDE
  12. OXYCONTIN [Concomitant]
     Active Substance: OXYCODONE HYDROCHLORIDE
  13. MOVANTIK [Suspect]
     Active Substance: NALOXEGOL OXALATE
     Indication: CONSTIPATION
     Dosage: 25 MG UNKNOWN
     Route: 048
  14. CREON [Concomitant]
     Active Substance: PANCRELIPASE AMYLASE\PANCRELIPASE LIPASE\PANCRELIPASE PROTEASE
  15. ANTI NAUSEA MEDICATIONS [Concomitant]

REACTIONS (11)
  - Tremor [Unknown]
  - Abdominal distension [Unknown]
  - Abdominal discomfort [Unknown]
  - Rash macular [Unknown]
  - Nausea [Unknown]
  - Diarrhoea [Not Recovered/Not Resolved]
  - Hyperhidrosis [Unknown]
  - Anxiety [Unknown]
  - Abdominal pain upper [Unknown]
  - Vomiting [Unknown]
  - Intentional product misuse [Unknown]
